FAERS Safety Report 7969822-4 (Version None)
Quarter: 2011Q4

REPORT INFORMATION
  Report Type: 
  Country: None (occurrence: None)
  Receive Date: 20111212
  Receipt Date: 20111207
  Transmission Date: 20120403
  Serious: Yes (Hospitalization)
  Sender: FDA-Public Use
  Company Number: JP-PFIZER INC-2011298006

PATIENT
  Sex: Female

DRUGS (2)
  1. ALPRAZOLAM [Suspect]
     Dosage: UNK
  2. ETIZOLAM [Suspect]
     Dosage: UNK

REACTIONS (2)
  - ALTERED STATE OF CONSCIOUSNESS [None]
  - OVERDOSE [None]
